FAERS Safety Report 8890768 (Version 5)
Quarter: 2013Q4

REPORT INFORMATION
  Report Type: Report from Study
  Country: JP (occurrence: JP)
  Receive Date: 20121107
  Receipt Date: 20131101
  Transmission Date: 20140711
  Serious: Yes (Other)
  Sender: FDA-Public Use
  Company Number: JP-VERTEX PHARMACEUTICAL INC.-AE-2012-009392

PATIENT
  Age: 61 Year
  Sex: Male

DRUGS (16)
  1. VX-950 (TELAPREVIR) [Suspect]
     Indication: CHRONIC HEPATITIS C
     Dosage: 1500 MG, QD
     Route: 048
     Dates: start: 20120510, end: 20120731
  2. REBETOL [Suspect]
     Indication: CHRONIC HEPATITIS C
     Dosage: 800 MG, QD
     Route: 048
     Dates: start: 20120509
  3. REBETOL [Suspect]
     Dosage: UNK MG, QD
     Route: 048
     Dates: start: 20120517
  4. REBETOL [Suspect]
     Dosage: 800 MG, QD
     Route: 048
     Dates: end: 20120529
  5. REBETOL [Suspect]
     Dosage: 200 MG, QD
     Route: 048
     Dates: start: 20120530, end: 20120827
  6. REBETOL [Suspect]
     Dosage: 400 MG, QD
     Route: 048
     Dates: start: 20120828, end: 20121023
  7. PEGINTRON [Suspect]
     Indication: CHRONIC HEPATITIS C
     Dosage: 1.5 ?G/KG, QW
     Route: 058
     Dates: start: 20120509, end: 20120516
  8. PEGINTRON [Suspect]
     Dosage: 0.7 ?G/KG, QW
     Route: 058
     Dates: start: 20120517, end: 20120807
  9. PEGINTRON [Suspect]
     Dosage: 1.5 ?G/KG, QW
     Route: 058
     Dates: start: 20120808, end: 20120827
  10. PEGINTRON [Suspect]
     Dosage: 0.7 ?G/KG, QW
     Route: 058
     Dates: start: 20120828, end: 20120904
  11. PEGINTRON [Suspect]
     Dosage: UNK ?G/KG, QW
     Route: 058
     Dates: start: 20120905, end: 20121017
  12. BLOPRESS [Concomitant]
     Dosage: 8 MG, QD
     Route: 048
  13. RYTHMODAN [Concomitant]
     Dosage: 50 MG, QD
     Route: 048
  14. ALLELOCK OD [Concomitant]
     Dosage: 10 MG, QD
     Route: 048
     Dates: start: 20120510, end: 20121015
  15. AMLODIN OD [Concomitant]
     Dosage: 2.5 MG, QD
     Route: 048
     Dates: start: 20120512
  16. GLYCYRON [Concomitant]
     Dosage: 6 DF, QD
     Route: 048
     Dates: end: 20121023

REACTIONS (1)
  - Neutrophil count decreased [Recovered/Resolved]
